FAERS Safety Report 7907402-7 (Version None)
Quarter: 2011Q4

REPORT INFORMATION
  Report Type: 
  Country: None (occurrence: None)
  Receive Date: 20111110
  Receipt Date: 20111104
  Transmission Date: 20120403
  Serious: Yes (Hospitalization)
  Sender: FDA-Public Use
  Company Number: MX-B.I. PHARMACEUTICALS,INC./RIDGEFIELD-2011-MX-00280MX

PATIENT
  Age: 70 Year
  Sex: Female
  Weight: 67 kg

DRUGS (1)
  1. DABIGATRAN ETEXILATE [Suspect]
     Indication: THROMBOSIS PROPHYLAXIS
     Dosage: 220 MG
     Route: 048
     Dates: start: 20111007, end: 20111017

REACTIONS (2)
  - LIVER DISORDER [None]
  - NEPHROPATHY TOXIC [None]
